FAERS Safety Report 18474774 (Version 1)
Quarter: 2020Q4

REPORT INFORMATION
  Report Type: Spontaneous
  Country: US (occurrence: US)
  Receive Date: 20201106
  Receipt Date: 20201106
  Transmission Date: 20210114
  Serious: Yes (Hospitalization)
  Sender: FDA-Public Use
  Company Number: US-VERTEX PHARMACEUTICALS-2020-021614

PATIENT
  Age: 10 Year
  Sex: Female

DRUGS (1)
  1. SYMDEKO [Suspect]
     Active Substance: IVACAFTOR\TEZACAFTOR
     Indication: CYSTIC FIBROSIS
     Dosage: ONE YELLOW TABLET IN THE MORNING AND ONE BLUE TABLET IN THE EVENING 12 HOURS APART EVERY DAY
     Route: 048
     Dates: start: 20200109

REACTIONS (8)
  - Pulmonary function test decreased [Unknown]
  - Infective pulmonary exacerbation of cystic fibrosis [Unknown]
  - Productive cough [Recovering/Resolving]
  - Hospitalisation [Unknown]
  - Pathogen resistance [Unknown]
  - Weight decreased [Unknown]
  - Hypersensitivity [Unknown]
  - Dysphonia [Unknown]

NARRATIVE: CASE EVENT DATE: 2020
